FAERS Safety Report 19178449 (Version 1)
Quarter: 2021Q2

REPORT INFORMATION
  Report Type: Spontaneous
  Country: AU (occurrence: AU)
  Receive Date: 20210426
  Receipt Date: 20210426
  Transmission Date: 20210717
  Serious: Yes (Life-Threatening, Hospitalization, Other)
  Sender: FDA-Public Use
  Company Number: AU-GENERIC HEALTH PTY. LTD.-2021-05211

PATIENT
  Age: 1 Year
  Sex: Male

DRUGS (16)
  1. MORPHINE [Suspect]
     Active Substance: MORPHINE
     Dosage: UNK (20 MICROG/KG/HR (AT 05:50))
     Route: 042
  2. ADRENALINE [EPINEPHRINE] [Concomitant]
     Active Substance: EPINEPHRINE
     Indication: PRODUCT USED FOR UNKNOWN INDICATION
     Dosage: UNK
     Route: 065
  3. ROPIVACAINE. [Concomitant]
     Active Substance: ROPIVACAINE HYDROCHLORIDE
     Indication: PRODUCT USED FOR UNKNOWN INDICATION
     Dosage: UNK
     Route: 065
  4. PARACETAMOL [Concomitant]
     Active Substance: ACETAMINOPHEN
     Indication: PAIN
     Dosage: UNK
     Route: 042
  5. CIPROFLOXACIN. [Concomitant]
     Active Substance: CIPROFLOXACIN
     Indication: ANTIBIOTIC THERAPY
     Dosage: UNK
     Route: 065
  6. FENTANYL. [Suspect]
     Active Substance: FENTANYL
     Indication: PROCEDURAL PAIN
     Dosage: 75 MICROGRAM
     Route: 042
  7. CEFAZOLIN [Concomitant]
     Active Substance: CEFAZOLIN
     Dosage: 250 MILLIGRAM (250 MG 1.5 H LATER)
     Route: 065
  8. NALOXONE [Concomitant]
     Active Substance: NALOXONE
     Indication: SEDATION COMPLICATION
     Dosage: 10 MICROGRAM (1MCG/KG)
     Route: 042
  9. MORPHINE [Suspect]
     Active Substance: MORPHINE
     Dosage: UNK (1ML OF 10 MICROGRAM/KILOGRAM/HOUR)
     Route: 042
  10. TRAMADOL. [Suspect]
     Active Substance: TRAMADOL
     Indication: PROCEDURAL PAIN
     Dosage: 2 MILLIGRAM/KILOGRAM (20 MG DOSE)
     Route: 065
  11. BENZYLPENICILLIN [Concomitant]
     Active Substance: PENICILLIN G
     Indication: ANTIBIOTIC THERAPY
     Dosage: 500 MILLIGRAM, QID
     Route: 042
  12. FENTANYL. [Suspect]
     Active Substance: FENTANYL
     Dosage: 5 MICROGRAM
     Route: 042
  13. MORPHINE [Suspect]
     Active Substance: MORPHINE
     Indication: PROCEDURAL PAIN
     Dosage: UNK (20 MICROGRAM/KILOGRAM/HOUR)
     Route: 042
  14. MORPHINE [Suspect]
     Active Substance: MORPHINE
     Dosage: UNK (10 MICROGRAM/KILOGRAM/HOUR)
     Route: 042
  15. CEFAZOLIN [Concomitant]
     Active Substance: CEFAZOLIN
     Indication: PRODUCT USED FOR UNKNOWN INDICATION
     Dosage: 250 MILLIGRAM (TWO DOSES OF 250 MG AT INDUCTION)
     Route: 065
  16. MORPHINE [Suspect]
     Active Substance: MORPHINE
     Dosage: UNK (DOUBLED TO 20 MCG/KG/H)
     Route: 042

REACTIONS (7)
  - Sedation complication [Recovered/Resolved]
  - Respiratory acidosis [Recovering/Resolving]
  - Aspiration [Recovering/Resolving]
  - Respiratory distress [Recovering/Resolving]
  - Condition aggravated [Recovering/Resolving]
  - Metabolic acidosis [Recovering/Resolving]
  - Incorrect product administration duration [Unknown]
